FAERS Safety Report 11869126 (Version 1)
Quarter: 2015Q4

REPORT INFORMATION
  Report Type: Spontaneous
  Country: DE (occurrence: DE)
  Receive Date: 20151226
  Receipt Date: 20151226
  Transmission Date: 20160305
  Serious: Yes (Hospitalization)
  Sender: FDA-Public Use
  Company Number: DE-ACCORD-036523

PATIENT
  Age: 52 Year
  Sex: Female
  Weight: 95.8 kg

DRUGS (1)
  1. PACLITAXEL/PACLITAXEL LIPOSOME [Suspect]
     Active Substance: PACLITAXEL
     Indication: BREAST CANCER
     Dates: start: 20151209

REACTIONS (6)
  - Chest discomfort [Recovered/Resolved]
  - Hot flush [Recovered/Resolved]
  - Musculoskeletal discomfort [Recovered/Resolved]
  - Breast discomfort [Recovered/Resolved]
  - Malaise [Recovered/Resolved]
  - Head discomfort [Recovered/Resolved]

NARRATIVE: CASE EVENT DATE: 20151209
